FAERS Safety Report 6987914-3 (Version None)
Quarter: 2010Q3

REPORT INFORMATION
  Report Type: 
  Country: None (occurrence: None)
  Receive Date: 20100916
  Receipt Date: 20100701
  Transmission Date: 20110219
  Serious: No
  Sender: FDA-Public Use
  Company Number: US-ABBOTT-10P-163-0654014-00

PATIENT
  Sex: Male
  Weight: 104.42 kg

DRUGS (3)
  1. TRILIPIX [Suspect]
     Indication: BLOOD CHOLESTEROL
     Dates: start: 20091001, end: 20100601
  2. METFORMIN [Concomitant]
     Indication: DIABETES MELLITUS
  3. ACTOS [Concomitant]
     Indication: DIABETES MELLITUS

REACTIONS (3)
  - DRUG DOSE OMISSION [None]
  - FATIGUE [None]
  - NAUSEA [None]
